FAERS Safety Report 9065595 (Version 1)
Quarter: 2013Q1

REPORT INFORMATION
  Report Type: Report from Study
  Country: US (occurrence: US)
  Receive Date: 20130206
  Receipt Date: 20130206
  Transmission Date: 20140127
  Serious: Yes (Hospitalization)
  Sender: FDA-Public Use
  Company Number: US-JNJFOC-20130200094

PATIENT
  Age: 41 None
  Sex: Male
  Weight: 90.72 kg

DRUGS (3)
  1. USTEKINUMAB [Suspect]
     Indication: PSORIASIS
     Route: 058
     Dates: start: 201001, end: 201008
  2. HUMIRA [Concomitant]
  3. CORTICOSTEROIDS [Concomitant]

REACTIONS (1)
  - Cerebrovascular accident [Recovered/Resolved]
